FAERS Safety Report 8886947 (Version 2)
Quarter: 2012Q4

REPORT INFORMATION
  Report Type: 
  Country: SE (occurrence: SE)
  Receive Date: 20121105
  Receipt Date: 20121112
  Transmission Date: 20130627
  Serious: Yes (Other)
  Sender: FDA-Public Use
  Company Number: SE-PFIZER INC-2012266378

PATIENT
  Age: 58 Year
  Sex: Female

DRUGS (4)
  1. MINDIAB [Suspect]
     Dosage: 5 mg, 1/2 tablet in the morning, 1 tablet in the evening
     Dates: start: 201112
  2. MINDIAB [Suspect]
     Dosage: 2.5 mg, 1 tablet in the morning, 1/2 tablet in the evening
  3. WARAN [Suspect]
     Dosage: UNK
  4. NORMORIX [Concomitant]
     Dosage: UNK

REACTIONS (9)
  - Heart rate increased [Recovered/Resolved]
  - Palpitations [Recovered/Resolved]
  - Dyspnoea [Not Recovered/Not Resolved]
  - Chest discomfort [Not Recovered/Not Resolved]
  - Feeling hot [Recovered/Resolved]
  - Pyrexia [Recovered/Resolved]
  - Malaise [Recovered/Resolved]
  - Drug ineffective [Not Recovered/Not Resolved]
  - Drug effect incomplete [Not Recovered/Not Resolved]
